FAERS Safety Report 7944023-4 (Version None)
Quarter: 2011Q4

REPORT INFORMATION
  Report Type: 
  Country: None (occurrence: None)
  Receive Date: 20111128
  Receipt Date: 20111115
  Transmission Date: 20120403
  Serious: Yes (Disabling, Other)
  Sender: FDA-Public Use
  Company Number: CA-ASTRAZENECA-2011SE69093

PATIENT
  Age: 74 Year
  Sex: Female
  Weight: 54.4 kg

DRUGS (9)
  1. CURCUMA GOUTTE 4 CH-30CH [Concomitant]
     Route: 048
  2. AVAPRO [Concomitant]
     Route: 048
  3. OXAZEPAM [Concomitant]
     Route: 048
  4. ARIMIDEX [Suspect]
     Route: 048
  5. RELAXEN [Concomitant]
     Route: 048
  6. ELAVIL [Concomitant]
     Route: 048
  7. GENACOL [Concomitant]
     Route: 048
  8. SYNTHROID [Concomitant]
     Route: 048
  9. CALCIUM+VITAMIN D [Concomitant]
     Route: 048

REACTIONS (9)
  - INSOMNIA [None]
  - MIGRAINE [None]
  - DEPRESSION [None]
  - BACK PAIN [None]
  - IMPATIENCE [None]
  - SOMNOLENCE [None]
  - DRY SKIN [None]
  - ARTHRALGIA [None]
  - FATIGUE [None]
